FAERS Safety Report 9417394 (Version 2)
Quarter: 2013Q4

REPORT INFORMATION
  Report Type: Spontaneous
  Country: US (occurrence: US)
  Receive Date: 20130724
  Receipt Date: 20131022
  Transmission Date: 20140711
  Serious: Yes (Other)
  Sender: FDA-Public Use
  Company Number: US-BRISTOL-MYERS SQUIBB COMPANY-18817858

PATIENT
  Age: 82 Year
  Sex: Female

DRUGS (6)
  1. ELIQUIS [Suspect]
     Indication: ATRIAL FIBRILLATION
     Route: 048
     Dates: start: 20130304
  2. ALLEGRA [Concomitant]
  3. ALPRAZOLAM [Concomitant]
  4. BISOPROLOL [Concomitant]
  5. CRESTOR [Concomitant]
  6. DIOVAN [Concomitant]

REACTIONS (1)
  - Deep vein thrombosis [Recovered/Resolved]
